FAERS Safety Report 18994312 (Version 2)
Quarter: 2021Q2

REPORT INFORMATION
  Report Type: Spontaneous
  Country: GB (occurrence: GB)
  Receive Date: 20210311
  Receipt Date: 20210504
  Transmission Date: 20210717
  Serious: Yes (Other)
  Sender: FDA-Public Use
  Company Number: GB-ORGANON-O2103GBR001021

PATIENT
  Sex: Female

DRUGS (2)
  1. ALENDRONATE SODIUM. [Suspect]
     Active Substance: ALENDRONATE SODIUM
     Indication: OSTEOPOROSIS
     Dosage: ONGOING, FOR ABOUT 2 YEARS, ONCE A WEEK
     Route: 048
  2. ADCAL D3 [Concomitant]
     Active Substance: CALCIUM CARBONATE\CHOLECALCIFEROL
     Indication: ILL-DEFINED DISORDER
     Dosage: UNK

REACTIONS (1)
  - Adverse drug reaction [Recovered/Resolved]
